FAERS Safety Report 9482734 (Version 2)
Quarter: 2013Q3

REPORT INFORMATION
  Report Type: Spontaneous
  Country: IT (occurrence: IT)
  Receive Date: 20130828
  Receipt Date: 20130920
  Transmission Date: 20140515
  Serious: Yes (Hospitalization)
  Sender: FDA-Public Use
  Company Number: IT-TEVA-428698ISR

PATIENT
  Age: 71 Year
  Sex: Male
  Weight: 114 kg

DRUGS (2)
  1. CARBOPLATINO TEVA [Suspect]
     Indication: LUNG ADENOCARCINOMA
     Dosage: 390 MG CYCLICAL
     Route: 042
     Dates: start: 20130808, end: 20130808
  2. ALIMTA [Suspect]
     Indication: LUNG ADENOCARCINOMA
     Dosage: 800 MG/M2 CYCLICAL; CONCENTRATE FOR SOLUTION FOR INFUSION
     Route: 041
     Dates: start: 20130808, end: 20130808

REACTIONS (4)
  - Renal failure acute [Recovered/Resolved]
  - Febrile neutropenia [Recovered/Resolved]
  - Thrombocytopenia [Recovering/Resolving]
  - Diarrhoea [Recovered/Resolved]
